FAERS Safety Report 7833615-9 (Version None)
Quarter: 2011Q4

REPORT INFORMATION
  Report Type: 
  Country: None (occurrence: None)
  Receive Date: 20111024
  Receipt Date: 20111019
  Transmission Date: 20120403
  Serious: Yes (Life-Threatening)
  Sender: FDA-Public Use
  Company Number: DE-SANOFI-AVENTIS-2011SA062610

PATIENT
  Age: 56 Year
  Sex: Female

DRUGS (2)
  1. METHOTREXATE SODIUM [Suspect]
     Route: 065
  2. HYDROXYCHLOROQUINE SULFATE [Suspect]
     Route: 048
     Dates: start: 20080312

REACTIONS (2)
  - LONG QT SYNDROME [None]
  - VENTRICULAR FIBRILLATION [None]
